FAERS Safety Report 8485800-3 (Version None)
Quarter: 2012Q3

REPORT INFORMATION
  Report Type: 
  Country: None (occurrence: None)
  Receive Date: 20120703
  Receipt Date: 20120626
  Transmission Date: 20120928
  Serious: Yes (Hospitalization)
  Sender: FDA-Public Use
  Company Number: US-INCYTE CORPORATION-2012IN000745

PATIENT
  Sex: Male
  Weight: 82.993 kg

DRUGS (6)
  1. PRILOSEC [Concomitant]
     Dosage: 40 MG, QD
  2. JAKAFI [Suspect]
     Dosage: 20 MG, (ALTERNATE BETWEEN 20 MG DAILY AND 20MG BID X 1 WEEK, THEN RESUME 20 MG BID)
     Dates: start: 20120504
  3. LISINOPRIL [Concomitant]
     Dosage: 20 MG, QD
  4. HYTRIN [Concomitant]
     Dosage: 5 MG, QD
  5. ASPIRIN [Concomitant]
     Dosage: 81 MG, QD
  6. JAKAFI [Suspect]
     Indication: MYELOFIBROSIS
     Dosage: 20 MG, BID
     Route: 048
     Dates: start: 20120406, end: 20120504

REACTIONS (2)
  - ANAEMIA [None]
  - PANCYTOPENIA [None]
